FAERS Safety Report 13835186 (Version 1)
Quarter: 2017Q3

REPORT INFORMATION
  Report Type: Spontaneous
  Country: US (occurrence: US)
  Receive Date: 20170804
  Receipt Date: 20170804
  Transmission Date: 20171127
  Serious: No
  Sender: FDA-Public Use
  Company Number: US-009507513-1708USA001918

PATIENT
  Sex: Male

DRUGS (4)
  1. AMITRIPTYLINE HYDROCHLORIDE. [Concomitant]
     Active Substance: AMITRIPTYLINE HYDROCHLORIDE
  2. ZEPATIER [Suspect]
     Active Substance: ELBASVIR\GRAZOPREVIR
     Indication: HEPATITIS C
     Dosage: TAKE 1 TABLET BY MOUTH EVERY DAY(STRENGTH 50-100MG)
     Route: 048
     Dates: start: 201704, end: 20170720
  3. GABAPENTIN. [Concomitant]
     Active Substance: GABAPENTIN
  4. NORCO [Concomitant]
     Active Substance: ACETAMINOPHEN\HYDROCODONE BITARTRATE

REACTIONS (1)
  - Depressed mood [Recovering/Resolving]

NARRATIVE: CASE EVENT DATE: 2017
